FAERS Safety Report 24317270 (Version 1)
Quarter: 2024Q3

REPORT INFORMATION
  Report Type: Spontaneous
  Country: US (occurrence: None)
  Receive Date: 20240913
  Receipt Date: 20240913
  Transmission Date: 20241017
  Serious: Yes (Hospitalization)
  Sender: Public
  Company Number: None

PATIENT
  Sex: Female

DRUGS (3)
  1. SKYRIZI [Suspect]
     Active Substance: RISANKIZUMAB-RZAA
     Indication: Psoriasis
     Dosage: OTHER FREQUENCY : EVERY12WEEKS;?
     Route: 042
     Dates: start: 202208
  2. FASENRA [Concomitant]
     Active Substance: BENRALIZUMAB
  3. FASENRA PEN [Concomitant]

REACTIONS (5)
  - Hospitalisation [None]
  - Atrial fibrillation [None]
  - Cardiac disorder [None]
  - Pulmonary oedema [None]
  - Oedematous kidney [None]
